FAERS Safety Report 5684928-0 (Version None)
Quarter: 2008Q1

REPORT INFORMATION
  Report Type: 
  Country: None (occurrence: None)
  Receive Date: 20080328
  Receipt Date: 20071231
  Transmission Date: 20080703
  Serious: No
  Sender: FDA-Public Use
  Company Number: US-BRISTOL-MYERS SQUIBB COMPANY-14027411

PATIENT
  Age: 37 Year
  Sex: Male

DRUGS (2)
  1. ERBITUX [Suspect]
     Indication: SQUAMOUS CELL CARCINOMA
     Dates: start: 20071218
  2. RADIATION THERAPY [Suspect]
     Indication: SQUAMOUS CELL CARCINOMA
     Dates: start: 20071219

REACTIONS (2)
  - ERYTHEMA [None]
  - OEDEMA [None]
